FAERS Safety Report 6394257-8 (Version None)
Quarter: 2009Q4

REPORT INFORMATION
  Report Type: 
  Country: None (occurrence: None)
  Receive Date: 20091006
  Receipt Date: 20090922
  Transmission Date: 20100525
  Serious: Yes (Hospitalization)
  Sender: FDA-Public Use
  Company Number: 2009AL006172

PATIENT
  Age: 23 Year
  Sex: Female

DRUGS (4)
  1. VENLAFAXINE HCL [Suspect]
     Indication: DEPRESSIVE SYMPTOM
     Dosage: 300 MG;QD
  2. TRAZODONE [Concomitant]
  3. BUPROPION HCL [Concomitant]
  4. PREGABALIN [Concomitant]

REACTIONS (2)
  - RASH GENERALISED [None]
  - RASH PRURITIC [None]
